FAERS Safety Report 5499286-4 (Version None)
Quarter: 2007Q4

REPORT INFORMATION
  Report Type: 
  Country: None (occurrence: None)
  Receive Date: 20071026
  Receipt Date: 20071017
  Transmission Date: 20080405
  Serious: Yes (Life-Threatening)
  Sender: FDA-Public Use
  Company Number: JP-GENENTECH-249747

PATIENT
  Age: 81 Year

DRUGS (1)
  1. RITUXAN [Suspect]
     Indication: NON-HODGKIN'S LYMPHOMA
     Dosage: 500 ML, QD
     Route: 042
     Dates: start: 20070726

REACTIONS (2)
  - HEPATIC FAILURE [None]
  - INTESTINAL PERFORATION [None]
